FAERS Safety Report 13171749 (Version 2)
Quarter: 2017Q1

REPORT INFORMATION
  Report Type: Spontaneous
  Country: US (occurrence: US)
  Receive Date: 20170201
  Receipt Date: 20170221
  Transmission Date: 20170428
  Serious: No
  Sender: FDA-Public Use
  Company Number: US-PFIZER INC-2017036997

PATIENT
  Age: 80 Year
  Sex: Female

DRUGS (9)
  1. METOLAZONE. [Concomitant]
     Active Substance: METOLAZONE
     Indication: SWELLING
     Dosage: 5 MG, ALTERNATE DAY [Q.O.D.]
  2. CARVEDILOL. [Concomitant]
     Active Substance: CARVEDILOL
     Dosage: 6.25 MG, UNK
  3. CLONAZEPAM. [Concomitant]
     Active Substance: CLONAZEPAM
     Dosage: 0.5 MG, UNK
     Dates: start: 2016
  4. POTASSIUM [Concomitant]
     Active Substance: POTASSIUM
     Dosage: 10 MEQ, UNK
     Dates: start: 2016
  5. TORSEMIDE. [Concomitant]
     Active Substance: TORSEMIDE
     Indication: SWELLING
     Dosage: 20 MG, DAILY
     Dates: start: 2016
  6. REVATIO [Suspect]
     Active Substance: SILDENAFIL CITRATE
     Indication: PULMONARY ARTERIAL HYPERTENSION
     Dosage: 20 MG, 3X/DAY
     Dates: start: 201604
  7. WARFARIN [Concomitant]
     Active Substance: WARFARIN
     Dosage: 5 MG, UNK
  8. LEVOTHYROXINE. [Concomitant]
     Active Substance: LEVOTHYROXINE
     Dosage: 0.5 MG, UNK
     Dates: start: 2016
  9. PRAMIPEXOLE. [Concomitant]
     Active Substance: PRAMIPEXOLE
     Indication: RESTLESS LEGS SYNDROME
     Dosage: 0.25 MG, 3X/DAY

REACTIONS (1)
  - Dyspnoea [Not Recovered/Not Resolved]

NARRATIVE: CASE EVENT DATE: 201604
